FAERS Safety Report 10042677 (Version 1)
Quarter: 2014Q1

REPORT INFORMATION
  Report Type: Report from Study
  Country: BR (occurrence: BR)
  Receive Date: 20140327
  Receipt Date: 20140327
  Transmission Date: 20141002
  Serious: Yes (Hospitalization, Disabling, Other)
  Sender: FDA-Public Use
  Company Number: PHHY2014BR036980

PATIENT
  Sex: Female
  Weight: 47 kg

DRUGS (6)
  1. ACLASTA [Suspect]
     Indication: OSTEOPOROSIS
     Dosage: ONCE PER YEAR
     Route: 042
     Dates: start: 201211
  2. SEROQUEL [Concomitant]
     Indication: SEDATION
     Dosage: 1 DF, QD
  3. CYMBALTA [Concomitant]
     Indication: ANTIDEPRESSANT THERAPY
     Dosage: 1 DF, QD
     Dates: start: 2012
  4. HIDANTAL [Concomitant]
     Indication: CONVULSION
     Dosage: 1 DF, QD
     Dates: start: 2013
  5. OMEPRAZOLE [Concomitant]
     Indication: GASTROINTESTINAL DISORDER
     Dosage: 1 DF, UNK
     Dates: start: 2008
  6. PURAN T4 [Concomitant]
     Indication: THYROID DISORDER
     Dosage: 1 DF, QD
     Dates: start: 2009

REACTIONS (5)
  - Abasia [Recovering/Resolving]
  - Fall [Recovered/Resolved]
  - Haemorrhagic stroke [Recovering/Resolving]
  - Amnesia [Recovering/Resolving]
  - Hypertension [Recovering/Resolving]
